FAERS Safety Report 7865304-9 (Version None)
Quarter: 2011Q4

REPORT INFORMATION
  Report Type: 
  Country: None (occurrence: None)
  Receive Date: 20111028
  Receipt Date: 20101119
  Transmission Date: 20120403
  Serious: No
  Sender: FDA-Public Use
  Company Number: US-GLAXOSMITHKLINE-A0894265A

PATIENT
  Age: 86 Year
  Sex: Female

DRUGS (19)
  1. XALATAN [Concomitant]
  2. LUTEIN [Concomitant]
  3. ZINC [Concomitant]
  4. PROAIR HFA [Concomitant]
  5. METOPROLOL TARTRATE [Concomitant]
  6. SELENIUM [Concomitant]
  7. WARFARIN SODIUM [Concomitant]
  8. OMEPRAZOLE [Concomitant]
  9. CALCIUM CARBONATE [Concomitant]
  10. LISINOPRIL [Concomitant]
  11. METHAZOLAMIDE [Concomitant]
  12. CO Q 10 [Concomitant]
  13. BILBERRY [Concomitant]
  14. MULTI-VITAMIN [Concomitant]
  15. ASCORBIC ACID [Concomitant]
  16. ADVAIR DISKUS 100/50 [Suspect]
     Indication: CHRONIC OBSTRUCTIVE PULMONARY DISEASE
     Dosage: 1PUFF TWICE PER DAY
     Route: 055
     Dates: start: 20101109
  17. HYDROCHLOROTHIAZIDE [Concomitant]
  18. AZOPT [Concomitant]
  19. VITAMIN E [Concomitant]

REACTIONS (1)
  - DYSPHONIA [None]
